FAERS Safety Report 13711136 (Version 1)
Quarter: 2017Q3

REPORT INFORMATION
  Report Type: Spontaneous
  Country: US (occurrence: US)
  Receive Date: 20170703
  Receipt Date: 20170703
  Transmission Date: 20171127
  Serious: Yes (Disabling)
  Sender: FDA-Public Use
  Company Number: None

PATIENT
  Age: 73 Year
  Sex: Female
  Weight: 61.74 kg

DRUGS (5)
  1. GENERIC LIPITOR [Concomitant]
     Active Substance: ATORVASTATIN CALCIUM
  2. CALCIUM+D [Concomitant]
     Active Substance: CALCIUM\VITAMIN D
  3. VITAMIN C [Concomitant]
     Active Substance: ASCORBIC ACID
  4. PROLIA [Suspect]
     Active Substance: DENOSUMAB
     Indication: BONE DENSITY ABNORMAL
     Dosage: 1 INJECTION 2 X YEAR?
     Dates: start: 201502, end: 201702
  5. B^S [Concomitant]

REACTIONS (4)
  - Oropharyngeal pain [None]
  - Dizziness [None]
  - Urinary tract infection [None]
  - Nasopharyngitis [None]

NARRATIVE: CASE EVENT DATE: 2016
